FAERS Safety Report 14941482 (Version 1)
Quarter: 2018Q2

REPORT INFORMATION
  Report Type: Spontaneous
  Country: US (occurrence: US)
  Receive Date: 20180526
  Receipt Date: 20180526
  Transmission Date: 20180711
  Serious: No
  Sender: FDA-Public Use
  Company Number: US-TEVA-2018-US-895418

PATIENT
  Sex: Female

DRUGS (4)
  1. QVAR REDIHALER [Suspect]
     Active Substance: BECLOMETHASONE DIPROPIONATE
     Indication: ASTHMA
     Route: 065
     Dates: start: 201804, end: 201805
  2. HYDROXYZINE [Concomitant]
     Active Substance: HYDROXYZINE HYDROCHLORIDE
     Route: 065
  3. QVAR [Suspect]
     Active Substance: BECLOMETHASONE DIPROPIONATE
     Indication: ASTHMA
     Route: 065
  4. XOPENEX [Concomitant]
     Active Substance: LEVALBUTEROL HYDROCHLORIDE
     Route: 065

REACTIONS (3)
  - Sleep disorder [Unknown]
  - Asthma [Unknown]
  - Cough [Unknown]

NARRATIVE: CASE EVENT DATE: 201804
